FAERS Safety Report 4663635-7 (Version None)
Quarter: 2005Q2

REPORT INFORMATION
  Report Type: 
  Country: None (occurrence: None)
  Receive Date: 20050517
  Receipt Date: 20030605
  Transmission Date: 20051028
  Serious: Yes (Hospitalization, Other)
  Sender: FDA-Public Use
  Company Number: US-MERCK-0306USA00707

PATIENT
  Age: 63 Year
  Sex: Female
  Weight: 76 kg

DRUGS (9)
  1. VIOXX [Suspect]
     Indication: ARTHRITIS
     Route: 048
     Dates: start: 20001101, end: 20010317
  2. ESTRACE [Concomitant]
     Route: 065
  3. ASPIRIN [Concomitant]
     Route: 065
  4. ALLEGRA [Concomitant]
     Route: 065
  5. HYOSCYAMINE [Concomitant]
     Route: 065
  6. ELAVIL [Concomitant]
     Route: 065
  7. DIOVAN [Concomitant]
     Route: 065
  8. [THERAPY UNSPECIFIED] [Concomitant]
     Route: 065
  9. ROBITUSSIN-DM [Concomitant]
     Indication: COUGH
     Route: 065

REACTIONS (21)
  - ADVERSE EVENT [None]
  - ANGINA PECTORIS [None]
  - ATELECTASIS [None]
  - ATRIAL FIBRILLATION [None]
  - BLOOD PRESSURE INCREASED [None]
  - BRONCHITIS [None]
  - CARDIAC FAILURE CONGESTIVE [None]
  - CARPAL TUNNEL SYNDROME [None]
  - CHEST PAIN [None]
  - CONGESTIVE CARDIOMYOPATHY [None]
  - CONVULSION [None]
  - DIZZINESS [None]
  - HYPERCHOLESTEROLAEMIA [None]
  - HYPERLIPIDAEMIA [None]
  - IRRITABLE BOWEL SYNDROME [None]
  - NASOPHARYNGITIS [None]
  - OSTEOARTHRITIS [None]
  - PALPITATIONS [None]
  - SQUAMOUS CELL CARCINOMA [None]
  - TACHYCARDIA [None]
  - VIRAL MYOCARDITIS [None]
